APPROVED DRUG PRODUCT: AMIKACIN SULFATE
Active Ingredient: AMIKACIN SULFATE
Strength: EQ 250MG BASE/ML
Dosage Form/Route: INJECTABLE;INJECTION
Application: A204040 | Product #001 | TE Code: AP
Applicant: AVET LIFESCIENCES LTD
Approved: Dec 12, 2013 | RLD: No | RS: Yes | Type: RX